FAERS Safety Report 5979444-2 (Version None)
Quarter: 2008Q4

REPORT INFORMATION
  Report Type: 
  Country: None (occurrence: None)
  Receive Date: 20081126
  Receipt Date: 20081113
  Transmission Date: 20090506
  Serious: Yes (Hospitalization)
  Sender: FDA-Public Use
  Company Number: 2008002970

PATIENT
  Age: 68 Year
  Sex: Male

DRUGS (8)
  1. ERLOTINIB (ERLOTINIB) (TABLET) (ERLOTINIB) [Suspect]
     Indication: LUNG ADENOCARCINOMA
     Dosage: 150 MG, QD, ORAL
     Route: 048
     Dates: start: 20080807, end: 20080809
  2. AMLODIPINE BESYLATE [Concomitant]
  3. MICARDIS [Concomitant]
  4. HARNAL (TAMSULOSIN HYDROCHLORIDE) [Concomitant]
  5. BASEN (VOGLIBOSE) [Concomitant]
  6. GLUFAST [Concomitant]
  7. NOVOLIN N [Concomitant]
  8. GASMOTIN (MOSAPRIDE CITRATE) [Concomitant]

REACTIONS (4)
  - DISEASE PROGRESSION [None]
  - INFECTION [None]
  - LEFT VENTRICULAR DYSFUNCTION [None]
  - PYREXIA [None]
